FAERS Safety Report 9061910 (Version 1)
Quarter: 2013Q1

REPORT INFORMATION
  Report Type: Spontaneous
  Country: CA (occurrence: None)
  Receive Date: 20130122
  Receipt Date: 20130122
  Transmission Date: 20140127
  Serious: Yes (Hospitalization, Other)
  Sender: FDA-Public Use
  Company Number: ADR-2013-00082

PATIENT
  Sex: 0

DRUGS (1)
  1. LIORESAL INTRATHECAL [Suspect]
     Dosage: DAY

REACTIONS (3)
  - Pancreatitis [None]
  - Vomiting [None]
  - Device malfunction [None]
